FAERS Safety Report 9003312 (Version 8)
Quarter: 2013Q2

REPORT INFORMATION
  Report Type: Report from Study
  Country: US (occurrence: US)
  Receive Date: 20130108
  Receipt Date: 20130626
  Transmission Date: 20140414
  Serious: Yes (Death, Life-Threatening, Hospitalization)
  Sender: FDA-Public Use
  Company Number: US-PFIZER INC-2013001503

PATIENT
  Age: 60 Year
  Sex: Male
  Weight: 101.7 kg

DRUGS (15)
  1. TEMSIROLIMUS [Suspect]
     Indication: HEPATIC CANCER
     Dosage: 10 MG, WEEKLY
     Route: 042
     Dates: start: 20121025, end: 20121115
  2. TEMSIROLIMUS [Suspect]
     Dosage: 10 MG, WEEKLY
     Route: 042
     Dates: start: 20121203, end: 20121203
  3. SORAFENIB [Suspect]
     Indication: HEPATIC CANCER
     Dosage: 200 MG, 2X/DAY
     Route: 048
     Dates: start: 20121025, end: 20121115
  4. SORAFENIB [Suspect]
     Dosage: 200 MG, 2X/DAY
     Route: 048
     Dates: start: 20121203, end: 20121206
  5. CLOBETASOL [Concomitant]
     Dosage: UNK
  6. DOXYCYCLINE [Concomitant]
     Dosage: UNK
  7. HYDROXIZINE [Concomitant]
     Dosage: UNK
  8. LACTULOSE [Concomitant]
     Dosage: UNK
  9. LISINOPRIL [Concomitant]
     Dosage: UNK
  10. ONDANSETRON [Concomitant]
     Dosage: UNK
  11. OXYCODONE [Concomitant]
     Dosage: UNK
  12. POTASSIUM [Concomitant]
     Dosage: UNK
  13. SODIUM MONOBASPHOS [Concomitant]
     Dosage: UNK
  14. PROCHLORPERAZINE [Concomitant]
     Dosage: UNK
  15. PROPRANOLOL [Concomitant]
     Dosage: UNK

REACTIONS (2)
  - Septic shock [Fatal]
  - Thrombosis [Not Recovered/Not Resolved]
